FAERS Safety Report 10341090 (Version 2)
Quarter: 2014Q3

REPORT INFORMATION
  Report Type: Spontaneous
  Country: US (occurrence: US)
  Receive Date: 20140724
  Receipt Date: 20140724
  Transmission Date: 20150326
  Serious: No
  Sender: FDA-Public Use
  Company Number: US-MYLANLABS-2014S1005270

PATIENT
  Sex: Female
  Weight: 72.58 kg

DRUGS (3)
  1. LEVOTHYROXINE SODIUM. [Suspect]
     Active Substance: LEVOTHYROXINE SODIUM
     Indication: AUTOIMMUNE THYROIDITIS
     Dates: start: 2012, end: 2013
  2. SYNTHROID [Suspect]
     Active Substance: LEVOTHYROXINE SODIUM
     Indication: AUTOIMMUNE THYROIDITIS
  3. CERAMIDE [Concomitant]
     Dosage: WALGREEN^S BRAND

REACTIONS (10)
  - Headache [Recovered/Resolved]
  - Inflammation [Recovered/Resolved]
  - Weight increased [Recovered/Resolved]
  - Heart rate increased [Unknown]
  - Dry skin [Unknown]
  - Laboratory test abnormal [Unknown]
  - Insomnia [Recovered/Resolved]
  - Alopecia [Recovered/Resolved]
  - Fatigue [Unknown]
  - Unevaluable event [Unknown]
